FAERS Safety Report 24756143 (Version 1)
Quarter: 2024Q4

REPORT INFORMATION
  Report Type: Spontaneous
  Country: US (occurrence: US)
  Receive Date: 20241219
  Receipt Date: 20241219
  Transmission Date: 20250114
  Serious: Yes (Hospitalization, Other)
  Sender: BRISTOL-MYERS SQUIBB COMPANY
  Company Number: US-BRISTOL-MYERS SQUIBB COMPANY-2024-193624

PATIENT
  Age: 80 Year
  Sex: Female
  Weight: 44.45 kg

DRUGS (20)
  1. ELIQUIS [Suspect]
     Active Substance: APIXABAN
     Indication: Atrial fibrillation
     Route: 048
  2. ELIQUIS [Suspect]
     Active Substance: APIXABAN
     Indication: Hypertension
  3. ENTRESTO [Concomitant]
     Active Substance: SACUBITRIL\VALSARTAN
     Indication: Product used for unknown indication
     Dosage: 24/26 MG
     Route: 048
     Dates: start: 20211015
  4. ENTRESTO [Concomitant]
     Active Substance: SACUBITRIL\VALSARTAN
     Dosage: 49/51 MG
     Route: 048
     Dates: start: 20230602
  5. AMIODARONE HYDROCHLORIDE [Concomitant]
     Active Substance: AMIODARONE HYDROCHLORIDE
     Indication: Product used for unknown indication
     Route: 048
  6. AMIODARONE HYDROCHLORIDE [Concomitant]
     Active Substance: AMIODARONE HYDROCHLORIDE
     Route: 048
  7. AMOXICILLIN [Concomitant]
     Active Substance: AMOXICILLIN
     Indication: Product used for unknown indication
     Route: 048
  8. AZELASTINE HYDROCHLORIDE\FLUTICASONE PROPIONATE [Concomitant]
     Active Substance: AZELASTINE HYDROCHLORIDE\FLUTICASONE PROPIONATE
     Indication: Product used for unknown indication
     Dosage: 137-50 MCG/ACT NASAL SUSPENSION; IN STILL 1 SQUIRT TWICE DAILY
     Route: 045
  9. DORZOLAMIDE HYDROCHLORIDE [Concomitant]
     Active Substance: DORZOLAMIDE HYDROCHLORIDE
     Indication: Product used for unknown indication
     Dosage: 2% OPHTHALMIC SOLUTION; 1 GTT BID OU
  10. FARXIGA [Concomitant]
     Active Substance: DAPAGLIFLOZIN PROPANEDIOL
     Indication: Product used for unknown indication
     Route: 048
  11. OMEPRAZOLE [Concomitant]
     Active Substance: OMEPRAZOLE
     Indication: Product used for unknown indication
     Dosage: OMEPRAZOLE 40 MG ORAL CAPSULE DELAYED RELEASE; TAKE 1 CAPSULE TWICE DAILY
  12. PANTOPRAZOLE SODIUM [Concomitant]
     Active Substance: PANTOPRAZOLE SODIUM
     Indication: Product used for unknown indication
     Dosage: PANTOPRAZOLE SODIUM 40 MG ORAL TABLET DELAYED RELEASE: TAKE 1 TABLET BY MOUTH ?EVERY DAY
     Route: 048
  13. RIFABUTIN [Concomitant]
     Active Substance: RIFABUTIN
     Indication: Product used for unknown indication
     Dosage: RIFABUTIN 150 MG ORAL CAPSULE; TAKE 1 CAPSULE IN THE MORNING AND 1 CAPSULE AT NIGHT FOR 10 DAYS
     Route: 048
  14. SIMVASTATIN [Concomitant]
     Active Substance: SIMVASTATIN
     Indication: Product used for unknown indication
     Dosage: SIMVASTATIN 10 MG ORAL TABLET; TAKE 1 TABLET AT BEDTIME
     Route: 048
  15. SUCRALFATE [Concomitant]
     Active Substance: SUCRALFATE
     Indication: Product used for unknown indication
     Dosage: SUCRAFATE 1 GM ORAL TABLET; TAKE 1 TABLET 4 TIMES DAILY, BEFORE MEALS AND AT BEDTIME
     Route: 048
  16. TALICIA [Concomitant]
     Active Substance: AMOXICILLIN\OMEPRAZOLE MAGNESIUM\RIFABUTIN
     Indication: Product used for unknown indication
     Dosage: TALICIA 250-12.5-10 MG ORAL CAPSULE DELAYED RELEASE; TAKE 4 CAPSULES EVERY 8 HOURS FOR 14 DAYS
     Route: 048
  17. OXYGEN [Concomitant]
     Active Substance: OXYGEN
     Indication: Product used for unknown indication
     Dosage: 0.1 PER MIN, NASAL CANNULA
  18. SODIUM CHLORIDE [Concomitant]
     Active Substance: SODIUM CHLORIDE
     Indication: Product used for unknown indication
     Dosage: 30.0 ML PER HR
     Route: 042
  19. VERSED [Concomitant]
     Active Substance: MIDAZOLAM HYDROCHLORIDE
     Indication: Product used for unknown indication
     Route: 042
  20. FENTANYL [Concomitant]
     Active Substance: FENTANYL
     Indication: Product used for unknown indication
     Route: 042

REACTIONS (44)
  - Abdominal pain [Unknown]
  - Acute kidney injury [Unknown]
  - Blood loss anaemia [Unknown]
  - Bronchiectasis [Unknown]
  - Coronary artery disease [Unknown]
  - Cough [Unknown]
  - Gastrooesophageal reflux disease [Unknown]
  - Cataract [Unknown]
  - Gait disturbance [Unknown]
  - Dyspnoea exertional [Unknown]
  - Fatigue [Unknown]
  - Gastric ulcer [Unknown]
  - General physical health deterioration [Unknown]
  - Gout [Unknown]
  - Helicobacter infection [Unknown]
  - Heart failure with preserved ejection fraction [Unknown]
  - Hyperlipidaemia [Unknown]
  - Hypertension [Unknown]
  - Hyperkalaemia [Recovered/Resolved]
  - Left ventricular hypertrophy [Unknown]
  - Memory impairment [Unknown]
  - Multiple sclerosis [Unknown]
  - Injury [Unknown]
  - Open angle glaucoma [Unknown]
  - Pulmonary mass [Unknown]
  - Right ventricular failure [Unknown]
  - Tricuspid valve incompetence [Unknown]
  - Limb injury [Unknown]
  - Cardiac valve disease [Unknown]
  - Vitreous floaters [Unknown]
  - Weight decreased [Unknown]
  - Cardiac dysfunction [Unknown]
  - Myocardial infarction [Unknown]
  - Melaena [Unknown]
  - Fall [Unknown]
  - Pelvic fracture [Unknown]
  - Rib fracture [Unknown]
  - Hypervolaemia [Recovered/Resolved]
  - Chest pain [Recovering/Resolving]
  - Weight increased [Unknown]
  - Dyspnoea [Recovering/Resolving]
  - Chest discomfort [Not Recovered/Not Resolved]
  - Dizziness [Unknown]
  - Decreased appetite [Unknown]

NARRATIVE: CASE EVENT DATE: 20230309
